FAERS Safety Report 5782393-6 (Version None)
Quarter: 2008Q2

REPORT INFORMATION
  Report Type: 
  Country: None (occurrence: None)
  Receive Date: 20080623
  Receipt Date: 20080611
  Transmission Date: 20081010
  Serious: Yes (Other)
  Sender: FDA-Public Use
  Company Number: CA-PFIZER INC-2008041984

PATIENT
  Sex: Female
  Weight: 50 kg

DRUGS (3)
  1. CHANTIX [Suspect]
     Indication: SMOKING CESSATION THERAPY
     Route: 048
     Dates: start: 20080417, end: 20080512
  2. ATENOLOL [Concomitant]
     Route: 048
  3. TYLENOL [Concomitant]
     Route: 048

REACTIONS (5)
  - ABDOMINAL DISCOMFORT [None]
  - DEPRESSED MOOD [None]
  - MEMORY IMPAIRMENT [None]
  - MOOD ALTERED [None]
  - STRESS [None]
